FAERS Safety Report 17415839 (Version 2)
Quarter: 2021Q3

REPORT INFORMATION
  Report Type: Spontaneous
  Country: US (occurrence: US)
  Receive Date: 20200213
  Receipt Date: 20210730
  Transmission Date: 20211014
  Serious: Yes (Hospitalization, Other)
  Sender: FDA-Public Use
  Company Number: US-TEVA-2020-US-1183406

PATIENT
  Age: 70 Year
  Sex: Female
  Weight: 81.72 kg

DRUGS (16)
  1. VALSARTAN W/HYDROCHLOROTHIAZIDE TEVA [Suspect]
     Active Substance: HYDROCHLOROTHIAZIDE\VALSARTAN
     Indication: HYPERTENSION
     Dosage: DOSAGE DETAILS: 160?12.5MG
     Route: 048
     Dates: start: 20130808, end: 20131223
  2. AMLODIPINE [Concomitant]
     Active Substance: AMLODIPINE BESYLATE
     Dosage: 5 MG, 1 TABLET BY ORAL ROUTE EVERY DAY
     Route: 048
  3. LISINOPRIL. [Concomitant]
     Active Substance: LISINOPRIL
     Indication: HYPERTENSION
     Dosage: DOSE: 10 MG/ONCE DAILY
     Route: 065
     Dates: start: 201202, end: 201212
  4. VALSARTAN W/HYDROCHLOROTHIAZIDE TEVA [Suspect]
     Active Substance: HYDROCHLOROTHIAZIDE\VALSARTAN
     Dosage: DOSAGE DETAILS: 320?25 MG
     Route: 048
     Dates: start: 20130826, end: 20130925
  5. VALSARTAN/HYDROCHLOROTHIAZIDE ALEMBIC [Suspect]
     Active Substance: HYDROCHLOROTHIAZIDE\VALSARTAN
     Indication: HYPERTENSION
     Dosage: DOSAGE DETAILS:12.5?160 MG
     Route: 048
     Dates: start: 20170718, end: 20180727
  6. NORVASC [Concomitant]
     Active Substance: AMLODIPINE BESYLATE
     Dosage: 10 MILLIGRAMS BY MOUTH 1 TIME PER DAY
     Route: 048
  7. VALSARTAN W/HYDROCHLOROTHIAZIDE TEVA [Suspect]
     Active Substance: HYDROCHLOROTHIAZIDE\VALSARTAN
     Dosage: DOSAGE DETAILS: 160?12.5MG
     Route: 048
     Dates: start: 20140106, end: 20160710
  8. ERYTHROMYCIN. [Concomitant]
     Active Substance: ERYTHROMYCIN
     Dosage: 500 MG,, TAKE 1 TABLET EVERY 6 HOURS
     Route: 048
     Dates: start: 20180219
  9. NEOMYCIN. [Concomitant]
     Active Substance: NEOMYCIN
     Dosage: 500 MG, 1 TABLET BY ORAL ROUTE 4 TIMES EVERY DAY
     Route: 048
     Dates: start: 20180219
  10. ATACAND [Concomitant]
     Active Substance: CANDESARTAN CILEXETIL
     Dosage: 16 MILLIGRAM BY MOUTH 1 TIME PER DAY
     Route: 048
  11. GOLYTELY [Concomitant]
     Active Substance: POLYETHYLENE GLYCOL 3350\POTASSIUM CHLORIDE\SODIUM BICARBONATE\SODIUM CHLORIDE\SODIUM SULFATE
     Dosage: 236 GRAM?22.74 GRAM?6.74 GRAM?5.86 GRAM, DRINK 1 GALLON OVER 4 HOURS
     Route: 048
     Dates: start: 20180219
  12. VITAMIN B6 [Concomitant]
     Active Substance: PYRIDOXINE HYDROCHLORIDE
     Dosage: 100 MG, 1 TABLET BY ORAL ROUTE 2 TIMES EVERY DAY
     Route: 048
     Dates: start: 20180103
  13. XELODA [Concomitant]
     Active Substance: CAPECITABINE
     Dosage: 500 MG?TAKE 3 TABLETS, ORAL 2 TIMES DAILY
     Route: 048
     Dates: start: 20170211
  14. NARCAN [Concomitant]
     Active Substance: NALOXONE HYDROCHLORIDE
     Dosage: EVERY 2 MINUTES, PRN FOR RESP RATE {8/MIN, FOR PHASE I AND II RECOVERY. MAY GIVE UP TO 0.4 MG
     Route: 042
  15. HYDRODIURIL [Concomitant]
     Active Substance: HYDROCHLOROTHIAZIDE
     Dosage: 12.5 MILLIGRAM BY MOUTH 1 TIME PER DAY
     Route: 048
  16. VALSARTAN/HYDROCHLOROTHIAZIDE SOLCO [Suspect]
     Active Substance: HYDROCHLOROTHIAZIDE\VALSARTAN
     Indication: HYPERTENSION
     Dosage: DOSAGE DETAILS:12.5?160 MG
     Route: 048
     Dates: start: 20160718, end: 20161016

REACTIONS (1)
  - Colorectal adenocarcinoma [Unknown]
